FAERS Safety Report 6341163-0 (Version None)
Quarter: 2009Q3

REPORT INFORMATION
  Report Type: 
  Country: None (occurrence: None)
  Receive Date: 20090904
  Receipt Date: 20090226
  Transmission Date: 20100115
  Serious: No
  Sender: FDA-Public Use
  Company Number: A0771016A

PATIENT
  Age: 56 Year
  Sex: Female

DRUGS (1)
  1. REQUIP [Suspect]
     Indication: DRUG USE FOR UNKNOWN INDICATION

REACTIONS (2)
  - HEADACHE [None]
  - NAUSEA [None]
